FAERS Safety Report 19855243 (Version 3)
Quarter: 2022Q1

REPORT INFORMATION
  Report Type: Report from Study
  Country: FR (occurrence: FR)
  Receive Date: 20210920
  Receipt Date: 20220123
  Transmission Date: 20220423
  Serious: Yes (Hospitalization)
  Sender: FDA-Public Use
  Company Number: FR-ABBVIE-21K-056-4081754-00

PATIENT
  Age: 44 Year
  Sex: Female
  Weight: 54 kg

DRUGS (7)
  1. UPADACITINIB [Suspect]
     Active Substance: UPADACITINIB
     Indication: Rheumatoid arthritis
     Route: 048
     Dates: start: 20210614, end: 20210630
  2. UPADACITINIB [Suspect]
     Active Substance: UPADACITINIB
     Route: 048
     Dates: start: 20210823, end: 20211128
  3. ADALIMUMAB [Suspect]
     Active Substance: ADALIMUMAB
     Indication: Rheumatoid arthritis
     Route: 058
     Dates: start: 2004, end: 2004
  4. CORTISONE [Concomitant]
     Active Substance: CORTISONE
     Indication: Rheumatoid arthritis
     Route: 048
     Dates: start: 20210604, end: 20210913
  5. CORTISONE [Concomitant]
     Active Substance: CORTISONE
     Route: 048
     Dates: start: 20210914
  6. SARS-COV-2 VACCINE [Concomitant]
     Indication: COVID-19 prophylaxis
     Dates: start: 20210715, end: 20210715
  7. SARS-COV-2 VACCINE [Concomitant]
     Dates: start: 20210815, end: 20210815

REACTIONS (3)
  - Arthrodesis [Recovered/Resolved]
  - Knee arthroplasty [Recovered/Resolved]
  - Drug ineffective [Unknown]

NARRATIVE: CASE EVENT DATE: 20210706
